FAERS Safety Report 7920923-6 (Version None)
Quarter: 2011Q4

REPORT INFORMATION
  Report Type: 
  Country: None (occurrence: None)
  Receive Date: 20111117
  Receipt Date: 20111018
  Transmission Date: 20120403
  Serious: No
  Sender: FDA-Public Use
  Company Number: US-GLAXOSMITHKLINE-A0949626A

PATIENT
  Sex: Male
  Weight: 113.6 kg

DRUGS (12)
  1. CITALOPRAM HYDROBROMIDE [Concomitant]
  2. ASPIRIN [Concomitant]
  3. VOTRIENT [Suspect]
     Indication: PRODUCT USED FOR UNKNOWN INDICATION
     Dosage: 200MG PER DAY
     Route: 048
  4. NITROGLYCERIN [Concomitant]
  5. RAMIPRIL [Concomitant]
  6. NIACIN [Concomitant]
  7. LEVOCETIRIZINE DIHYDROCHLORIDE [Concomitant]
  8. IMODIUM A-D [Concomitant]
  9. MUCINEX [Concomitant]
  10. MOVE FREE [Concomitant]
  11. MULTI-VITAMIN [Concomitant]
  12. LOVAZA [Concomitant]

REACTIONS (1)
  - DIARRHOEA [None]
